FAERS Safety Report 14372617 (Version 1)
Quarter: 2018Q1

REPORT INFORMATION
  Report Type: Spontaneous
  Country: US (occurrence: US)
  Receive Date: 20180110
  Receipt Date: 20180110
  Transmission Date: 20180509
  Serious: Yes (Other)
  Sender: FDA-Public Use
  Company Number: US-PURDUE-USA-2018-0142334

PATIENT
  Sex: Female

DRUGS (2)
  1. SENOKOT [Suspect]
     Active Substance: SENNOSIDES
     Indication: PRODUCT USED FOR UNKNOWN INDICATION
     Dosage: 2 TABLET, HS
     Route: 048
  2. SENOKOT [Suspect]
     Active Substance: SENNOSIDES
     Dosage: 4 TABLET, AC
     Route: 048

REACTIONS (2)
  - Dysentery [Unknown]
  - Diarrhoea [Unknown]
